FAERS Safety Report 7302622 (Version 44)
Quarter: 2023Q1

REPORT INFORMATION
  Report Type: Spontaneous
  Country: CA (occurrence: CA)
  Receive Date: 20100302
  Receipt Date: 20230301
  Transmission Date: 20230418
  Serious: Yes (Other)
  Sender: FDA-Public Use
  Company Number: CA-MERCK-0907CAN00093

PATIENT
  Age: 52 Year
  Sex: Male

DRUGS (513)
  1. ISENTRESS [Suspect]
     Active Substance: RALTEGRAVIR POTASSIUM
     Indication: HIV infection
     Dosage: 400 MG, UNK
     Route: 048
  2. ISENTRESS [Suspect]
     Active Substance: RALTEGRAVIR POTASSIUM
     Dosage: UNK
     Route: 065
  3. SUSTIVA [Suspect]
     Active Substance: EFAVIRENZ
     Indication: HIV infection
     Dosage: DOSAGE FORM NOT SPECIFIED
     Route: 048
  4. SUSTIVA [Suspect]
     Active Substance: EFAVIRENZ
     Dosage: DOSAGE FORM NOT SPECIFIED
     Route: 048
  5. SUSTIVA [Suspect]
     Active Substance: EFAVIRENZ
     Dosage: DOSAGE FORM NOT SPECIFIED
     Route: 048
  6. SUSTIVA [Suspect]
     Active Substance: EFAVIRENZ
     Dosage: DOSAGE FORM NOT SPECIFIED
     Route: 048
  7. SUSTIVA [Suspect]
     Active Substance: EFAVIRENZ
     Dosage: DOSAGE FORM NOT SPECIFIED
     Route: 048
  8. SUSTIVA [Suspect]
     Active Substance: EFAVIRENZ
     Dosage: DOSAGE FORM NOT SPECIFIED
     Route: 048
  9. CRIXIVAN [Suspect]
     Active Substance: INDINAVIR SULFATE
     Indication: HIV infection
     Dosage: UNK
     Route: 048
  10. CRIXIVAN [Suspect]
     Active Substance: INDINAVIR SULFATE
     Dosage: UNK
     Route: 065
  11. CRIXIVAN [Suspect]
     Active Substance: INDINAVIR SULFATE
     Dosage: UNK
     Route: 048
  12. CRIXIVAN [Suspect]
     Active Substance: INDINAVIR SULFATE
     Dosage: UNK
     Route: 065
  13. CRIXIVAN [Suspect]
     Active Substance: INDINAVIR SULFATE
     Dosage: UNK
     Route: 048
  14. CRIXIVAN [Suspect]
     Active Substance: INDINAVIR SULFATE
     Dosage: UNK
     Route: 065
  15. CRIXIVAN [Suspect]
     Active Substance: INDINAVIR SULFATE
     Dosage: UNK
     Route: 048
  16. CRIXIVAN [Suspect]
     Active Substance: INDINAVIR SULFATE
     Dosage: UNK
     Route: 065
  17. CRIXIVAN [Suspect]
     Active Substance: INDINAVIR SULFATE
     Dosage: UNK
     Route: 048
  18. CRIXIVAN [Suspect]
     Active Substance: INDINAVIR SULFATE
     Dosage: UNK
     Route: 065
  19. CRIXIVAN [Suspect]
     Active Substance: INDINAVIR SULFATE
     Dosage: UNK
     Route: 048
  20. CRIXIVAN [Suspect]
     Active Substance: INDINAVIR SULFATE
     Dosage: UNK
     Route: 065
  21. LAMIVUDINE [Suspect]
     Active Substance: LAMIVUDINE
     Indication: HIV infection
     Dosage: DOSAGE FORM: NOT SPECIFIED
     Route: 065
  22. LAMIVUDINE [Suspect]
     Active Substance: LAMIVUDINE
     Indication: Antiretroviral therapy
     Dosage: DOSAGE FORM: NOT SPECIFIED
     Route: 048
  23. LAMIVUDINE [Suspect]
     Active Substance: LAMIVUDINE
     Dosage: UNK
     Route: 065
  24. LAMIVUDINE [Suspect]
     Active Substance: LAMIVUDINE
     Dosage: DOSAGE FORM: NOT SPECIFIED
     Route: 065
  25. LAMIVUDINE [Suspect]
     Active Substance: LAMIVUDINE
     Dosage: DOSAGE FORM: NOT SPECIFIED
     Route: 048
  26. LAMIVUDINE [Suspect]
     Active Substance: LAMIVUDINE
     Dosage: UNK
     Route: 065
  27. LAMIVUDINE [Suspect]
     Active Substance: LAMIVUDINE
     Dosage: DOSAGE FORM: NOT SPECIFIED
     Route: 065
  28. LAMIVUDINE [Suspect]
     Active Substance: LAMIVUDINE
     Dosage: DOSAGE FORM: NOT SPECIFIED
     Route: 048
  29. LAMIVUDINE [Suspect]
     Active Substance: LAMIVUDINE
     Dosage: UNK
     Route: 065
  30. LAMIVUDINE [Suspect]
     Active Substance: LAMIVUDINE
     Dosage: DOSAGE FORM: NOT SPECIFIED
     Route: 065
  31. LAMIVUDINE [Suspect]
     Active Substance: LAMIVUDINE
     Dosage: DOSAGE FORM: NOT SPECIFIED
     Route: 048
  32. LAMIVUDINE [Suspect]
     Active Substance: LAMIVUDINE
     Dosage: UNK
     Route: 065
  33. LAMIVUDINE [Suspect]
     Active Substance: LAMIVUDINE
     Dosage: DOSAGE FORM: NOT SPECIFIED
     Route: 065
  34. LAMIVUDINE [Suspect]
     Active Substance: LAMIVUDINE
     Dosage: DOSAGE FORM: NOT SPECIFIED
     Route: 048
  35. LAMIVUDINE [Suspect]
     Active Substance: LAMIVUDINE
     Dosage: UNK
     Route: 065
  36. LAMIVUDINE [Suspect]
     Active Substance: LAMIVUDINE
     Dosage: DOSAGE FORM: NOT SPECIFIED
     Route: 065
  37. LAMIVUDINE [Suspect]
     Active Substance: LAMIVUDINE
     Dosage: DOSAGE FORM: NOT SPECIFIED
     Route: 048
  38. LAMIVUDINE [Suspect]
     Active Substance: LAMIVUDINE
     Dosage: UNK
     Route: 065
  39. ABACAVIR SUCCINATE [Suspect]
     Active Substance: ABACAVIR SUCCINATE
     Indication: HIV infection
     Dosage: UNK
     Route: 048
     Dates: start: 200802
  40. ABACAVIR SUCCINATE [Suspect]
     Active Substance: ABACAVIR SUCCINATE
     Indication: Antiretroviral therapy
     Dosage: UNK
     Route: 048
  41. ABACAVIR SUCCINATE [Suspect]
     Active Substance: ABACAVIR SUCCINATE
     Dosage: UNK
     Route: 065
  42. ABACAVIR SUCCINATE [Suspect]
     Active Substance: ABACAVIR SUCCINATE
     Dosage: UNK
     Route: 065
  43. ABACAVIR SUCCINATE [Suspect]
     Active Substance: ABACAVIR SUCCINATE
     Dosage: UNK
     Route: 048
  44. ABACAVIR SUCCINATE [Suspect]
     Active Substance: ABACAVIR SUCCINATE
     Dosage: UNK
     Route: 065
  45. ABACAVIR SUCCINATE [Suspect]
     Active Substance: ABACAVIR SUCCINATE
     Dosage: UNK
     Route: 048
  46. ABACAVIR SUCCINATE [Suspect]
     Active Substance: ABACAVIR SUCCINATE
     Dosage: UNK
     Route: 065
  47. ABACAVIR SUCCINATE [Suspect]
     Active Substance: ABACAVIR SUCCINATE
     Dosage: UNK
     Route: 065
  48. ABACAVIR SUCCINATE [Suspect]
     Active Substance: ABACAVIR SUCCINATE
     Dosage: UNK
     Route: 048
  49. ABACAVIR SUCCINATE [Suspect]
     Active Substance: ABACAVIR SUCCINATE
     Dosage: UNK
     Route: 065
  50. ABACAVIR SUCCINATE [Suspect]
     Active Substance: ABACAVIR SUCCINATE
     Dosage: UNK
     Route: 048
  51. ABACAVIR SUCCINATE [Suspect]
     Active Substance: ABACAVIR SUCCINATE
     Dosage: UNK
     Route: 065
  52. ABACAVIR SUCCINATE [Suspect]
     Active Substance: ABACAVIR SUCCINATE
     Dosage: UNK
     Route: 065
  53. ABACAVIR SUCCINATE [Suspect]
     Active Substance: ABACAVIR SUCCINATE
     Dosage: UNK
     Route: 048
  54. ABACAVIR SUCCINATE [Suspect]
     Active Substance: ABACAVIR SUCCINATE
     Dosage: UNK
     Route: 065
  55. ABACAVIR SUCCINATE [Suspect]
     Active Substance: ABACAVIR SUCCINATE
     Dosage: UNK
     Route: 048
  56. ABACAVIR SUCCINATE [Suspect]
     Active Substance: ABACAVIR SUCCINATE
     Dosage: UNK
     Route: 065
  57. ABACAVIR SUCCINATE [Suspect]
     Active Substance: ABACAVIR SUCCINATE
     Dosage: UNK
     Route: 065
  58. ABACAVIR SUCCINATE [Suspect]
     Active Substance: ABACAVIR SUCCINATE
     Dosage: UNK
     Route: 048
  59. ABACAVIR SUCCINATE [Suspect]
     Active Substance: ABACAVIR SUCCINATE
     Dosage: UNK
     Route: 065
  60. ABACAVIR SUCCINATE [Suspect]
     Active Substance: ABACAVIR SUCCINATE
     Dosage: UNK
     Route: 048
  61. ABACAVIR SUCCINATE [Suspect]
     Active Substance: ABACAVIR SUCCINATE
     Dosage: UNK
     Route: 065
  62. ABACAVIR SUCCINATE [Suspect]
     Active Substance: ABACAVIR SUCCINATE
     Dosage: UNK
     Route: 065
  63. ABACAVIR SUCCINATE [Suspect]
     Active Substance: ABACAVIR SUCCINATE
     Dosage: UNK
     Route: 048
  64. ABACAVIR SUCCINATE [Suspect]
     Active Substance: ABACAVIR SUCCINATE
     Dosage: UNK
     Route: 065
  65. ABACAVIR SUCCINATE [Suspect]
     Active Substance: ABACAVIR SUCCINATE
     Dosage: UNK
     Route: 048
  66. ABACAVIR SUCCINATE [Suspect]
     Active Substance: ABACAVIR SUCCINATE
     Dosage: UNK
     Route: 065
  67. ABACAVIR SUCCINATE [Suspect]
     Active Substance: ABACAVIR SUCCINATE
     Dosage: UNK
     Route: 065
  68. ABACAVIR SUCCINATE [Suspect]
     Active Substance: ABACAVIR SUCCINATE
     Dosage: UNK
     Route: 048
  69. ABACAVIR SUCCINATE [Suspect]
     Active Substance: ABACAVIR SUCCINATE
     Dosage: UNK
     Route: 065
  70. PREZISTA [Suspect]
     Active Substance: DARUNAVIR ETHANOLATE
     Indication: HIV infection
     Dosage: UNK
     Route: 048
  71. PREZISTA [Suspect]
     Active Substance: DARUNAVIR ETHANOLATE
     Dosage: UNK
     Route: 065
  72. PREZISTA [Suspect]
     Active Substance: DARUNAVIR ETHANOLATE
     Dosage: UNK
     Route: 048
  73. PREZISTA [Suspect]
     Active Substance: DARUNAVIR ETHANOLATE
     Dosage: UNK
     Route: 065
  74. PREZISTA [Suspect]
     Active Substance: DARUNAVIR ETHANOLATE
     Dosage: UNK
     Route: 048
  75. PREZISTA [Suspect]
     Active Substance: DARUNAVIR ETHANOLATE
     Dosage: UNK
     Route: 065
  76. PREZISTA [Suspect]
     Active Substance: DARUNAVIR ETHANOLATE
     Dosage: UNK
     Route: 048
  77. PREZISTA [Suspect]
     Active Substance: DARUNAVIR ETHANOLATE
     Dosage: UNK
     Route: 065
  78. PREZISTA [Suspect]
     Active Substance: DARUNAVIR ETHANOLATE
     Dosage: UNK
     Route: 048
  79. PREZISTA [Suspect]
     Active Substance: DARUNAVIR ETHANOLATE
     Dosage: UNK
     Route: 065
  80. PREZISTA [Suspect]
     Active Substance: DARUNAVIR ETHANOLATE
     Dosage: UNK
     Route: 048
  81. PREZISTA [Suspect]
     Active Substance: DARUNAVIR ETHANOLATE
     Dosage: UNK
     Route: 065
  82. NORVIR [Suspect]
     Active Substance: RITONAVIR
     Indication: HIV infection
     Dosage: DOSAGE FORM NOT SPECIFIED
     Route: 048
     Dates: end: 200802
  83. NORVIR [Suspect]
     Active Substance: RITONAVIR
     Indication: Antiretroviral therapy
     Dosage: UNK
     Route: 065
  84. NORVIR [Suspect]
     Active Substance: RITONAVIR
     Dosage: UNK
     Route: 065
  85. NORVIR [Suspect]
     Active Substance: RITONAVIR
     Dosage: UNK
     Route: 065
  86. NORVIR [Suspect]
     Active Substance: RITONAVIR
     Dosage: DOSAGE FORM NOT SPECIFIED
     Route: 048
     Dates: end: 200802
  87. NORVIR [Suspect]
     Active Substance: RITONAVIR
     Dosage: UNK
     Route: 065
  88. NORVIR [Suspect]
     Active Substance: RITONAVIR
     Dosage: UNK
     Route: 065
  89. NORVIR [Suspect]
     Active Substance: RITONAVIR
     Dosage: UNK
     Route: 065
  90. NORVIR [Suspect]
     Active Substance: RITONAVIR
     Dosage: DOSAGE FORM NOT SPECIFIED
     Route: 048
     Dates: end: 200802
  91. NORVIR [Suspect]
     Active Substance: RITONAVIR
     Dosage: UNK
     Route: 065
  92. NORVIR [Suspect]
     Active Substance: RITONAVIR
     Dosage: UNK
     Route: 065
  93. NORVIR [Suspect]
     Active Substance: RITONAVIR
     Dosage: UNK
     Route: 065
  94. NORVIR [Suspect]
     Active Substance: RITONAVIR
     Dosage: DOSAGE FORM NOT SPECIFIED
     Route: 048
     Dates: end: 200802
  95. NORVIR [Suspect]
     Active Substance: RITONAVIR
     Dosage: UNK
     Route: 065
  96. NORVIR [Suspect]
     Active Substance: RITONAVIR
     Dosage: UNK
     Route: 065
  97. NORVIR [Suspect]
     Active Substance: RITONAVIR
     Dosage: UNK
     Route: 065
  98. NORVIR [Suspect]
     Active Substance: RITONAVIR
     Dosage: DOSAGE FORM NOT SPECIFIED
     Route: 048
     Dates: end: 200802
  99. NORVIR [Suspect]
     Active Substance: RITONAVIR
     Dosage: UNK
     Route: 065
  100. NORVIR [Suspect]
     Active Substance: RITONAVIR
     Dosage: UNK
     Route: 065
  101. NORVIR [Suspect]
     Active Substance: RITONAVIR
     Dosage: UNK
     Route: 065
  102. NORVIR [Suspect]
     Active Substance: RITONAVIR
     Dosage: DOSAGE FORM NOT SPECIFIED
     Route: 048
     Dates: end: 200802
  103. NORVIR [Suspect]
     Active Substance: RITONAVIR
     Dosage: UNK
     Route: 065
  104. NORVIR [Suspect]
     Active Substance: RITONAVIR
     Dosage: UNK
     Route: 065
  105. NORVIR [Suspect]
     Active Substance: RITONAVIR
     Dosage: UNK
     Route: 065
  106. INTELENCE [Suspect]
     Active Substance: ETRAVIRINE
     Indication: HIV infection
     Dosage: UNK
     Route: 048
  107. INTELENCE [Suspect]
     Active Substance: ETRAVIRINE
     Dosage: UNK
     Route: 065
  108. INTELENCE [Suspect]
     Active Substance: ETRAVIRINE
     Dosage: UNK
     Route: 048
  109. INTELENCE [Suspect]
     Active Substance: ETRAVIRINE
     Dosage: UNK
     Route: 048
  110. INTELENCE [Suspect]
     Active Substance: ETRAVIRINE
     Dosage: UNK
     Route: 065
  111. INTELENCE [Suspect]
     Active Substance: ETRAVIRINE
     Dosage: UNK
     Route: 048
  112. INTELENCE [Suspect]
     Active Substance: ETRAVIRINE
     Dosage: UNK
     Route: 048
  113. INTELENCE [Suspect]
     Active Substance: ETRAVIRINE
     Dosage: UNK
     Route: 065
  114. INTELENCE [Suspect]
     Active Substance: ETRAVIRINE
     Dosage: UNK
     Route: 048
  115. INTELENCE [Suspect]
     Active Substance: ETRAVIRINE
     Dosage: UNK
     Route: 048
  116. INTELENCE [Suspect]
     Active Substance: ETRAVIRINE
     Dosage: UNK
     Route: 065
  117. INTELENCE [Suspect]
     Active Substance: ETRAVIRINE
     Dosage: UNK
     Route: 048
  118. INTELENCE [Suspect]
     Active Substance: ETRAVIRINE
     Dosage: UNK
     Route: 048
  119. INTELENCE [Suspect]
     Active Substance: ETRAVIRINE
     Dosage: UNK
     Route: 065
  120. INTELENCE [Suspect]
     Active Substance: ETRAVIRINE
     Dosage: UNK
     Route: 048
  121. INTELENCE [Suspect]
     Active Substance: ETRAVIRINE
     Dosage: UNK
     Route: 048
  122. INTELENCE [Suspect]
     Active Substance: ETRAVIRINE
     Dosage: UNK
     Route: 065
  123. INTELENCE [Suspect]
     Active Substance: ETRAVIRINE
     Dosage: UNK
     Route: 048
  124. RESCRIPTOR [Suspect]
     Active Substance: DELAVIRDINE MESYLATE
     Indication: HIV infection
     Dosage: UNK
     Route: 048
  125. RESCRIPTOR [Suspect]
     Active Substance: DELAVIRDINE MESYLATE
     Dosage: UNK
     Route: 065
  126. RESCRIPTOR [Suspect]
     Active Substance: DELAVIRDINE MESYLATE
     Dosage: UNK
     Route: 048
  127. RESCRIPTOR [Suspect]
     Active Substance: DELAVIRDINE MESYLATE
     Dosage: UNK
     Route: 065
  128. RESCRIPTOR [Suspect]
     Active Substance: DELAVIRDINE MESYLATE
     Dosage: UNK
     Route: 048
  129. RESCRIPTOR [Suspect]
     Active Substance: DELAVIRDINE MESYLATE
     Dosage: UNK
     Route: 065
  130. RESCRIPTOR [Suspect]
     Active Substance: DELAVIRDINE MESYLATE
     Dosage: UNK
     Route: 048
  131. RESCRIPTOR [Suspect]
     Active Substance: DELAVIRDINE MESYLATE
     Dosage: UNK
     Route: 065
  132. RESCRIPTOR [Suspect]
     Active Substance: DELAVIRDINE MESYLATE
     Dosage: UNK
     Route: 048
  133. RESCRIPTOR [Suspect]
     Active Substance: DELAVIRDINE MESYLATE
     Dosage: UNK
     Route: 065
  134. RESCRIPTOR [Suspect]
     Active Substance: DELAVIRDINE MESYLATE
     Dosage: UNK
     Route: 048
  135. RESCRIPTOR [Suspect]
     Active Substance: DELAVIRDINE MESYLATE
     Dosage: UNK
     Route: 065
  136. VIDEX EC [Suspect]
     Active Substance: DIDANOSINE
     Indication: HIV infection
     Dosage: CAPSULE ENTERIC COATED
     Route: 048
  137. VIDEX EC [Suspect]
     Active Substance: DIDANOSINE
     Dosage: UNK
     Route: 048
  138. VIDEX EC [Suspect]
     Active Substance: DIDANOSINE
     Dosage: CAPSULE ENTERIC COATED
     Route: 048
  139. VIDEX EC [Suspect]
     Active Substance: DIDANOSINE
     Dosage: UNK
     Route: 048
  140. VIDEX EC [Suspect]
     Active Substance: DIDANOSINE
     Dosage: CAPSULE ENTERIC COATED
     Route: 048
  141. VIDEX EC [Suspect]
     Active Substance: DIDANOSINE
     Dosage: UNK
     Route: 048
  142. VIDEX EC [Suspect]
     Active Substance: DIDANOSINE
     Dosage: CAPSULE ENTERIC COATED
     Route: 048
  143. VIDEX EC [Suspect]
     Active Substance: DIDANOSINE
     Dosage: UNK
     Route: 048
  144. VIDEX EC [Suspect]
     Active Substance: DIDANOSINE
     Dosage: CAPSULE ENTERIC COATED
     Route: 048
  145. VIDEX EC [Suspect]
     Active Substance: DIDANOSINE
     Dosage: UNK
     Route: 048
  146. VIDEX EC [Suspect]
     Active Substance: DIDANOSINE
     Dosage: CAPSULE ENTERIC COATED
     Route: 048
  147. VIDEX EC [Suspect]
     Active Substance: DIDANOSINE
     Dosage: UNK
     Route: 048
  148. LOPINAVIR\RITONAVIR [Suspect]
     Active Substance: LOPINAVIR\RITONAVIR
     Indication: HIV infection
     Dosage: UNK
     Route: 065
  149. LOPINAVIR\RITONAVIR [Suspect]
     Active Substance: LOPINAVIR\RITONAVIR
     Indication: Product used for unknown indication
     Dosage: UNK
     Route: 065
  150. LOPINAVIR\RITONAVIR [Suspect]
     Active Substance: LOPINAVIR\RITONAVIR
     Dosage: UNK
     Route: 065
  151. LOPINAVIR\RITONAVIR [Suspect]
     Active Substance: LOPINAVIR\RITONAVIR
     Dosage: UNK
     Route: 065
  152. LOPINAVIR\RITONAVIR [Suspect]
     Active Substance: LOPINAVIR\RITONAVIR
     Dosage: UNK
     Route: 065
  153. LOPINAVIR\RITONAVIR [Suspect]
     Active Substance: LOPINAVIR\RITONAVIR
     Dosage: UNK
     Route: 065
  154. NEVIRAPINE [Suspect]
     Active Substance: NEVIRAPINE
     Indication: HIV infection
     Dosage: UNK
     Route: 048
  155. NEVIRAPINE [Suspect]
     Active Substance: NEVIRAPINE
     Dosage: UNK
     Route: 065
  156. NEVIRAPINE [Suspect]
     Active Substance: NEVIRAPINE
     Dosage: UNK
     Route: 065
  157. NEVIRAPINE [Suspect]
     Active Substance: NEVIRAPINE
     Dosage: UNK
     Route: 048
  158. NEVIRAPINE [Suspect]
     Active Substance: NEVIRAPINE
     Dosage: UNK
     Route: 065
  159. NEVIRAPINE [Suspect]
     Active Substance: NEVIRAPINE
     Dosage: UNK
     Route: 065
  160. NEVIRAPINE [Suspect]
     Active Substance: NEVIRAPINE
     Dosage: UNK
     Route: 048
  161. NEVIRAPINE [Suspect]
     Active Substance: NEVIRAPINE
     Dosage: UNK
     Route: 065
  162. NEVIRAPINE [Suspect]
     Active Substance: NEVIRAPINE
     Dosage: UNK
     Route: 065
  163. NEVIRAPINE [Suspect]
     Active Substance: NEVIRAPINE
     Dosage: UNK
     Route: 048
  164. NEVIRAPINE [Suspect]
     Active Substance: NEVIRAPINE
     Dosage: UNK
     Route: 065
  165. NEVIRAPINE [Suspect]
     Active Substance: NEVIRAPINE
     Dosage: UNK
     Route: 065
  166. NEVIRAPINE [Suspect]
     Active Substance: NEVIRAPINE
     Dosage: UNK
     Route: 048
  167. NEVIRAPINE [Suspect]
     Active Substance: NEVIRAPINE
     Dosage: UNK
     Route: 065
  168. NEVIRAPINE [Suspect]
     Active Substance: NEVIRAPINE
     Dosage: UNK
     Route: 065
  169. NEVIRAPINE [Suspect]
     Active Substance: NEVIRAPINE
     Dosage: UNK
     Route: 048
  170. NEVIRAPINE [Suspect]
     Active Substance: NEVIRAPINE
     Dosage: UNK
     Route: 065
  171. NEVIRAPINE [Suspect]
     Active Substance: NEVIRAPINE
     Dosage: UNK
     Route: 065
  172. SAQUINAVIR [Suspect]
     Active Substance: SAQUINAVIR
     Indication: HIV infection
     Dosage: DOSAGR FORM: NOT SPECIFIED
     Route: 048
  173. SAQUINAVIR [Suspect]
     Active Substance: SAQUINAVIR
     Dosage: UNK
     Route: 065
  174. SAQUINAVIR [Suspect]
     Active Substance: SAQUINAVIR
     Dosage: DOSAGR FORM: NOT SPECIFIED
     Route: 048
  175. SAQUINAVIR [Suspect]
     Active Substance: SAQUINAVIR
     Dosage: UNK
     Route: 065
  176. SAQUINAVIR [Suspect]
     Active Substance: SAQUINAVIR
     Dosage: DOSAGR FORM: NOT SPECIFIED
     Route: 048
  177. SAQUINAVIR [Suspect]
     Active Substance: SAQUINAVIR
     Dosage: UNK
     Route: 065
  178. SAQUINAVIR [Suspect]
     Active Substance: SAQUINAVIR
     Dosage: DOSAGR FORM: NOT SPECIFIED
     Route: 048
  179. SAQUINAVIR [Suspect]
     Active Substance: SAQUINAVIR
     Dosage: UNK
     Route: 065
  180. SAQUINAVIR [Suspect]
     Active Substance: SAQUINAVIR
     Dosage: DOSAGR FORM: NOT SPECIFIED
     Route: 048
  181. SAQUINAVIR [Suspect]
     Active Substance: SAQUINAVIR
     Dosage: UNK
     Route: 065
  182. SAQUINAVIR [Suspect]
     Active Substance: SAQUINAVIR
     Dosage: DOSAGR FORM: NOT SPECIFIED
     Route: 048
  183. SAQUINAVIR [Suspect]
     Active Substance: SAQUINAVIR
     Dosage: UNK
     Route: 065
  184. ZERIT [Suspect]
     Active Substance: STAVUDINE
     Indication: HIV infection
     Dosage: UNK
     Route: 065
  185. ZERIT [Suspect]
     Active Substance: STAVUDINE
     Dosage: DOAGE FORM: NOT SPECIFIED
     Route: 048
  186. ZERIT [Suspect]
     Active Substance: STAVUDINE
     Dosage: UNK
     Route: 065
  187. ZERIT [Suspect]
     Active Substance: STAVUDINE
     Dosage: DOAGE FORM: NOT SPECIFIED
     Route: 048
  188. ZERIT [Suspect]
     Active Substance: STAVUDINE
     Dosage: UNK
     Route: 048
  189. ZERIT [Suspect]
     Active Substance: STAVUDINE
     Dosage: UNK
     Route: 065
  190. ZERIT [Suspect]
     Active Substance: STAVUDINE
     Dosage: DOAGE FORM: NOT SPECIFIED
     Route: 048
  191. ZERIT [Suspect]
     Active Substance: STAVUDINE
     Dosage: UNK
     Route: 065
  192. ZERIT [Suspect]
     Active Substance: STAVUDINE
     Dosage: DOAGE FORM: NOT SPECIFIED
     Route: 048
  193. ZERIT [Suspect]
     Active Substance: STAVUDINE
     Dosage: UNK
     Route: 048
  194. ZERIT [Suspect]
     Active Substance: STAVUDINE
     Dosage: UNK
     Route: 065
  195. ZERIT [Suspect]
     Active Substance: STAVUDINE
     Dosage: DOAGE FORM: NOT SPECIFIED
     Route: 048
  196. ZERIT [Suspect]
     Active Substance: STAVUDINE
     Dosage: UNK
     Route: 065
  197. ZERIT [Suspect]
     Active Substance: STAVUDINE
     Dosage: DOAGE FORM: NOT SPECIFIED
     Route: 048
  198. ZERIT [Suspect]
     Active Substance: STAVUDINE
     Dosage: UNK
     Route: 048
  199. ZERIT [Suspect]
     Active Substance: STAVUDINE
     Dosage: UNK
     Route: 065
  200. ZERIT [Suspect]
     Active Substance: STAVUDINE
     Dosage: DOAGE FORM: NOT SPECIFIED
     Route: 048
  201. ZERIT [Suspect]
     Active Substance: STAVUDINE
     Dosage: UNK
     Route: 065
  202. ZERIT [Suspect]
     Active Substance: STAVUDINE
     Dosage: DOAGE FORM: NOT SPECIFIED
     Route: 048
  203. ZERIT [Suspect]
     Active Substance: STAVUDINE
     Dosage: UNK
     Route: 048
  204. ZERIT [Suspect]
     Active Substance: STAVUDINE
     Dosage: UNK
     Route: 065
  205. ZERIT [Suspect]
     Active Substance: STAVUDINE
     Dosage: DOAGE FORM: NOT SPECIFIED
     Route: 048
  206. ZERIT [Suspect]
     Active Substance: STAVUDINE
     Dosage: UNK
     Route: 065
  207. ZERIT [Suspect]
     Active Substance: STAVUDINE
     Dosage: DOAGE FORM: NOT SPECIFIED
     Route: 048
  208. ZERIT [Suspect]
     Active Substance: STAVUDINE
     Dosage: UNK
     Route: 048
  209. ZERIT [Suspect]
     Active Substance: STAVUDINE
     Dosage: UNK
     Route: 065
  210. ZERIT [Suspect]
     Active Substance: STAVUDINE
     Dosage: DOAGE FORM: NOT SPECIFIED
     Route: 048
  211. ZERIT [Suspect]
     Active Substance: STAVUDINE
     Dosage: UNK
     Route: 065
  212. ZERIT [Suspect]
     Active Substance: STAVUDINE
     Dosage: DOAGE FORM: NOT SPECIFIED
     Route: 048
  213. ZERIT [Suspect]
     Active Substance: STAVUDINE
     Dosage: UNK
     Route: 048
  214. STAVUDINE [Suspect]
     Active Substance: STAVUDINE
     Indication: HIV infection
     Dosage: UNK
     Route: 048
  215. STAVUDINE [Suspect]
     Active Substance: STAVUDINE
     Dosage: UNK
     Route: 048
  216. STAVUDINE [Suspect]
     Active Substance: STAVUDINE
     Dosage: UNK
     Route: 048
  217. STAVUDINE [Suspect]
     Active Substance: STAVUDINE
     Dosage: UNK
     Route: 048
  218. STAVUDINE [Suspect]
     Active Substance: STAVUDINE
     Dosage: UNK
     Route: 048
  219. STAVUDINE [Suspect]
     Active Substance: STAVUDINE
     Dosage: UNK
     Route: 048
  220. STAVUDINE [Suspect]
     Active Substance: STAVUDINE
     Dosage: UNK
     Route: 048
  221. STAVUDINE [Suspect]
     Active Substance: STAVUDINE
     Dosage: UNK
     Route: 048
  222. STAVUDINE [Suspect]
     Active Substance: STAVUDINE
     Dosage: UNK
     Route: 048
  223. STAVUDINE [Suspect]
     Active Substance: STAVUDINE
     Dosage: UNK
     Route: 048
  224. STAVUDINE [Suspect]
     Active Substance: STAVUDINE
     Dosage: UNK
     Route: 048
  225. STAVUDINE [Suspect]
     Active Substance: STAVUDINE
     Dosage: UNK
     Route: 048
  226. VIREAD [Suspect]
     Active Substance: TENOFOVIR DISOPROXIL FUMARATE
     Indication: HIV infection
     Dosage: UNK
     Route: 048
  227. VIREAD [Suspect]
     Active Substance: TENOFOVIR DISOPROXIL FUMARATE
     Dosage: UNK
     Route: 048
  228. VIREAD [Suspect]
     Active Substance: TENOFOVIR DISOPROXIL FUMARATE
     Dosage: UNK
     Route: 048
  229. VIREAD [Suspect]
     Active Substance: TENOFOVIR DISOPROXIL FUMARATE
     Dosage: UNK
     Route: 048
  230. VIREAD [Suspect]
     Active Substance: TENOFOVIR DISOPROXIL FUMARATE
     Dosage: UNK
     Route: 048
  231. VIREAD [Suspect]
     Active Substance: TENOFOVIR DISOPROXIL FUMARATE
     Dosage: UNK
     Route: 048
  232. TENOFOVIR DISOPROXIL FUMARATE [Suspect]
     Active Substance: TENOFOVIR DISOPROXIL FUMARATE
     Indication: HIV infection
     Dosage: UNK
     Route: 048
  233. TENOFOVIR DISOPROXIL FUMARATE [Suspect]
     Active Substance: TENOFOVIR DISOPROXIL FUMARATE
     Indication: Product used for unknown indication
     Dosage: UNK
     Route: 065
  234. TENOFOVIR DISOPROXIL FUMARATE [Suspect]
     Active Substance: TENOFOVIR DISOPROXIL FUMARATE
     Dosage: UNK
     Route: 048
  235. TENOFOVIR DISOPROXIL FUMARATE [Suspect]
     Active Substance: TENOFOVIR DISOPROXIL FUMARATE
     Dosage: UNK
     Route: 065
  236. TENOFOVIR DISOPROXIL FUMARATE [Suspect]
     Active Substance: TENOFOVIR DISOPROXIL FUMARATE
     Dosage: UNK
     Route: 048
  237. TENOFOVIR DISOPROXIL FUMARATE [Suspect]
     Active Substance: TENOFOVIR DISOPROXIL FUMARATE
     Dosage: UNK
     Route: 065
  238. TENOFOVIR DISOPROXIL FUMARATE [Suspect]
     Active Substance: TENOFOVIR DISOPROXIL FUMARATE
     Dosage: UNK
     Route: 048
  239. TENOFOVIR DISOPROXIL FUMARATE [Suspect]
     Active Substance: TENOFOVIR DISOPROXIL FUMARATE
     Dosage: UNK
     Route: 065
  240. TENOFOVIR DISOPROXIL FUMARATE [Suspect]
     Active Substance: TENOFOVIR DISOPROXIL FUMARATE
     Dosage: UNK
     Route: 048
  241. TENOFOVIR DISOPROXIL FUMARATE [Suspect]
     Active Substance: TENOFOVIR DISOPROXIL FUMARATE
     Dosage: UNK
     Route: 065
  242. TENOFOVIR DISOPROXIL FUMARATE [Suspect]
     Active Substance: TENOFOVIR DISOPROXIL FUMARATE
     Dosage: UNK
     Route: 048
  243. TENOFOVIR DISOPROXIL FUMARATE [Suspect]
     Active Substance: TENOFOVIR DISOPROXIL FUMARATE
     Dosage: UNK
     Route: 065
  244. ZIDOVUDINE [Suspect]
     Active Substance: ZIDOVUDINE
     Indication: HIV infection
     Dosage: DOSAGE FORM: NOT SPECIFIED
     Route: 048
  245. ZIDOVUDINE [Suspect]
     Active Substance: ZIDOVUDINE
     Dosage: UNK
     Route: 065
  246. ZIDOVUDINE [Suspect]
     Active Substance: ZIDOVUDINE
     Dosage: DOSAGE FORM: NOT SPECIFIED
     Route: 048
  247. ZIDOVUDINE [Suspect]
     Active Substance: ZIDOVUDINE
     Dosage: UNK
     Route: 065
  248. ZIDOVUDINE [Suspect]
     Active Substance: ZIDOVUDINE
     Dosage: DOSAGE FORM: NOT SPECIFIED
     Route: 048
  249. ZIDOVUDINE [Suspect]
     Active Substance: ZIDOVUDINE
     Dosage: UNK
     Route: 065
  250. ZIDOVUDINE [Suspect]
     Active Substance: ZIDOVUDINE
     Dosage: DOSAGE FORM: NOT SPECIFIED
     Route: 048
  251. ZIDOVUDINE [Suspect]
     Active Substance: ZIDOVUDINE
     Dosage: UNK
     Route: 065
  252. ZIDOVUDINE [Suspect]
     Active Substance: ZIDOVUDINE
     Dosage: DOSAGE FORM: NOT SPECIFIED
     Route: 048
  253. ZIDOVUDINE [Suspect]
     Active Substance: ZIDOVUDINE
     Dosage: UNK
     Route: 065
  254. ZIDOVUDINE [Suspect]
     Active Substance: ZIDOVUDINE
     Dosage: DOSAGE FORM: NOT SPECIFIED
     Route: 048
  255. ZIDOVUDINE [Suspect]
     Active Substance: ZIDOVUDINE
     Dosage: UNK
     Route: 065
  256. KALETRA [Suspect]
     Active Substance: LOPINAVIR\RITONAVIR
     Indication: HIV infection
     Dosage: UNK
     Route: 065
  257. KALETRA [Suspect]
     Active Substance: LOPINAVIR\RITONAVIR
     Indication: Antiretroviral therapy
     Dosage: DOSAGE FORM: NOT SPECIFIED
     Route: 048
  258. KALETRA [Suspect]
     Active Substance: LOPINAVIR\RITONAVIR
     Dosage: UNK
     Route: 065
  259. KALETRA [Suspect]
     Active Substance: LOPINAVIR\RITONAVIR
     Dosage: DOSAGE FORM: NOT SPECIFIED
     Route: 048
  260. KALETRA [Suspect]
     Active Substance: LOPINAVIR\RITONAVIR
     Dosage: UNK
     Route: 065
  261. KALETRA [Suspect]
     Active Substance: LOPINAVIR\RITONAVIR
     Dosage: DOSAGE FORM: NOT SPECIFIED
     Route: 048
  262. KALETRA [Suspect]
     Active Substance: LOPINAVIR\RITONAVIR
     Dosage: UNK
     Route: 065
  263. KALETRA [Suspect]
     Active Substance: LOPINAVIR\RITONAVIR
     Dosage: DOSAGE FORM: NOT SPECIFIED
     Route: 048
  264. KALETRA [Suspect]
     Active Substance: LOPINAVIR\RITONAVIR
     Dosage: UNK
     Route: 065
  265. KALETRA [Suspect]
     Active Substance: LOPINAVIR\RITONAVIR
     Dosage: DOSAGE FORM: NOT SPECIFIED
     Route: 048
  266. KALETRA [Suspect]
     Active Substance: LOPINAVIR\RITONAVIR
     Dosage: UNK
     Route: 065
  267. KALETRA [Suspect]
     Active Substance: LOPINAVIR\RITONAVIR
     Dosage: DOSAGE FORM: NOT SPECIFIED
     Route: 048
  268. ENFUVIRTIDE [Suspect]
     Active Substance: ENFUVIRTIDE
     Indication: HIV infection
     Dosage: UNK
     Route: 058
  269. ENFUVIRTIDE [Suspect]
     Active Substance: ENFUVIRTIDE
     Indication: Product used for unknown indication
     Dosage: UNK
     Route: 048
  270. ENFUVIRTIDE [Suspect]
     Active Substance: ENFUVIRTIDE
     Dosage: FREQUENCY: TOTAL
     Route: 058
  271. ENFUVIRTIDE [Suspect]
     Active Substance: ENFUVIRTIDE
     Dosage: UNK
     Route: 058
  272. ENFUVIRTIDE [Suspect]
     Active Substance: ENFUVIRTIDE
     Dosage: UNK
     Route: 048
  273. ENFUVIRTIDE [Suspect]
     Active Substance: ENFUVIRTIDE
     Dosage: FREQUENCY: TOTAL
     Route: 058
  274. ENFUVIRTIDE [Suspect]
     Active Substance: ENFUVIRTIDE
     Dosage: UNK
     Route: 058
  275. ENFUVIRTIDE [Suspect]
     Active Substance: ENFUVIRTIDE
     Dosage: UNK
     Route: 048
  276. ENFUVIRTIDE [Suspect]
     Active Substance: ENFUVIRTIDE
     Dosage: FREQUENCY: TOTAL
     Route: 058
  277. ENFUVIRTIDE [Suspect]
     Active Substance: ENFUVIRTIDE
     Dosage: UNK
     Route: 058
  278. ENFUVIRTIDE [Suspect]
     Active Substance: ENFUVIRTIDE
     Dosage: UNK
     Route: 048
  279. ENFUVIRTIDE [Suspect]
     Active Substance: ENFUVIRTIDE
     Dosage: FREQUENCY: TOTAL
     Route: 058
  280. ENFUVIRTIDE [Suspect]
     Active Substance: ENFUVIRTIDE
     Dosage: UNK
     Route: 058
  281. ENFUVIRTIDE [Suspect]
     Active Substance: ENFUVIRTIDE
     Dosage: UNK
     Route: 048
  282. ENFUVIRTIDE [Suspect]
     Active Substance: ENFUVIRTIDE
     Dosage: FREQUENCY: TOTAL
     Route: 058
  283. ENFUVIRTIDE [Suspect]
     Active Substance: ENFUVIRTIDE
     Dosage: UNK
     Route: 058
  284. ENFUVIRTIDE [Suspect]
     Active Substance: ENFUVIRTIDE
     Dosage: UNK
     Route: 048
  285. ENFUVIRTIDE [Suspect]
     Active Substance: ENFUVIRTIDE
     Dosage: FREQUENCY: TOTAL
     Route: 058
  286. ABACAVIR SULFATE [Suspect]
     Active Substance: ABACAVIR SULFATE
     Indication: HIV infection
     Dosage: UNK
     Route: 065
  287. ABACAVIR SULFATE [Suspect]
     Active Substance: ABACAVIR SULFATE
     Indication: Antiretroviral therapy
     Dosage: UNK
     Route: 048
  288. ABACAVIR SULFATE [Suspect]
     Active Substance: ABACAVIR SULFATE
     Indication: Product used for unknown indication
     Dosage: UNK
     Route: 065
  289. ABACAVIR SULFATE [Suspect]
     Active Substance: ABACAVIR SULFATE
     Dosage: UNK
     Route: 048
  290. ABACAVIR SULFATE [Suspect]
     Active Substance: ABACAVIR SULFATE
     Dosage: UNK
     Route: 065
  291. ABACAVIR SULFATE [Suspect]
     Active Substance: ABACAVIR SULFATE
     Dosage: UNK
     Route: 065
  292. ABACAVIR SULFATE [Suspect]
     Active Substance: ABACAVIR SULFATE
     Dosage: UNK
     Route: 065
  293. ABACAVIR SULFATE [Suspect]
     Active Substance: ABACAVIR SULFATE
     Dosage: UNK
     Route: 048
  294. ABACAVIR SULFATE [Suspect]
     Active Substance: ABACAVIR SULFATE
     Dosage: UNK
     Route: 065
  295. ABACAVIR SULFATE [Suspect]
     Active Substance: ABACAVIR SULFATE
     Dosage: UNK
     Route: 048
  296. ABACAVIR SULFATE [Suspect]
     Active Substance: ABACAVIR SULFATE
     Dosage: UNK
     Route: 065
  297. ABACAVIR SULFATE [Suspect]
     Active Substance: ABACAVIR SULFATE
     Dosage: UNK
     Route: 065
  298. ABACAVIR SULFATE [Suspect]
     Active Substance: ABACAVIR SULFATE
     Dosage: UNK
     Route: 065
  299. ABACAVIR SULFATE [Suspect]
     Active Substance: ABACAVIR SULFATE
     Dosage: UNK
     Route: 048
  300. ABACAVIR SULFATE [Suspect]
     Active Substance: ABACAVIR SULFATE
     Dosage: UNK
     Route: 065
  301. ABACAVIR SULFATE [Suspect]
     Active Substance: ABACAVIR SULFATE
     Dosage: UNK
     Route: 048
  302. ABACAVIR SULFATE [Suspect]
     Active Substance: ABACAVIR SULFATE
     Dosage: UNK
     Route: 065
  303. ABACAVIR SULFATE [Suspect]
     Active Substance: ABACAVIR SULFATE
     Dosage: UNK
     Route: 065
  304. ABACAVIR SULFATE [Suspect]
     Active Substance: ABACAVIR SULFATE
     Dosage: UNK
     Route: 065
  305. ABACAVIR SULFATE [Suspect]
     Active Substance: ABACAVIR SULFATE
     Dosage: UNK
     Route: 048
  306. ABACAVIR SULFATE [Suspect]
     Active Substance: ABACAVIR SULFATE
     Dosage: UNK
     Route: 065
  307. ABACAVIR SULFATE [Suspect]
     Active Substance: ABACAVIR SULFATE
     Dosage: UNK
     Route: 048
  308. ABACAVIR SULFATE [Suspect]
     Active Substance: ABACAVIR SULFATE
     Dosage: UNK
     Route: 065
  309. ABACAVIR SULFATE [Suspect]
     Active Substance: ABACAVIR SULFATE
     Dosage: UNK
     Route: 065
  310. ABACAVIR SULFATE [Suspect]
     Active Substance: ABACAVIR SULFATE
     Dosage: UNK
     Route: 065
  311. ABACAVIR SULFATE [Suspect]
     Active Substance: ABACAVIR SULFATE
     Dosage: UNK
     Route: 048
  312. ABACAVIR SULFATE [Suspect]
     Active Substance: ABACAVIR SULFATE
     Dosage: UNK
     Route: 065
  313. ABACAVIR SULFATE [Suspect]
     Active Substance: ABACAVIR SULFATE
     Dosage: UNK
     Route: 048
  314. ABACAVIR SULFATE [Suspect]
     Active Substance: ABACAVIR SULFATE
     Dosage: UNK
     Route: 065
  315. ABACAVIR SULFATE [Suspect]
     Active Substance: ABACAVIR SULFATE
     Dosage: UNK
     Route: 065
  316. ABACAVIR SULFATE [Suspect]
     Active Substance: ABACAVIR SULFATE
     Dosage: UNK
     Route: 065
  317. ABACAVIR SULFATE [Suspect]
     Active Substance: ABACAVIR SULFATE
     Dosage: UNK
     Route: 048
  318. ABACAVIR SULFATE [Suspect]
     Active Substance: ABACAVIR SULFATE
     Dosage: UNK
     Route: 065
  319. ABACAVIR SULFATE [Suspect]
     Active Substance: ABACAVIR SULFATE
     Dosage: UNK
     Route: 048
  320. ABACAVIR SULFATE [Suspect]
     Active Substance: ABACAVIR SULFATE
     Dosage: UNK
     Route: 065
  321. ABACAVIR SULFATE [Suspect]
     Active Substance: ABACAVIR SULFATE
     Dosage: UNK
     Route: 065
  322. DARUNAVIR [Suspect]
     Active Substance: DARUNAVIR
     Indication: HIV infection
     Dosage: UNK
     Route: 065
  323. DARUNAVIR [Suspect]
     Active Substance: DARUNAVIR
     Indication: Antiretroviral therapy
     Dosage: UNK
     Route: 065
  324. DARUNAVIR [Suspect]
     Active Substance: DARUNAVIR
     Dosage: UNK
     Route: 048
  325. DARUNAVIR [Suspect]
     Active Substance: DARUNAVIR
     Dosage: UNK
     Route: 065
  326. DARUNAVIR [Suspect]
     Active Substance: DARUNAVIR
     Dosage: UNK
     Route: 065
  327. DARUNAVIR [Suspect]
     Active Substance: DARUNAVIR
     Dosage: UNK
     Route: 048
  328. DARUNAVIR [Suspect]
     Active Substance: DARUNAVIR
     Dosage: UNK
     Route: 065
  329. DARUNAVIR [Suspect]
     Active Substance: DARUNAVIR
     Dosage: UNK
     Route: 065
  330. DARUNAVIR [Suspect]
     Active Substance: DARUNAVIR
     Dosage: UNK
     Route: 048
  331. DARUNAVIR [Suspect]
     Active Substance: DARUNAVIR
     Dosage: UNK
     Route: 065
  332. DARUNAVIR [Suspect]
     Active Substance: DARUNAVIR
     Dosage: UNK
     Route: 065
  333. DARUNAVIR [Suspect]
     Active Substance: DARUNAVIR
     Dosage: UNK
     Route: 048
  334. DARUNAVIR [Suspect]
     Active Substance: DARUNAVIR
     Dosage: UNK
     Route: 065
  335. DARUNAVIR [Suspect]
     Active Substance: DARUNAVIR
     Dosage: UNK
     Route: 065
  336. DARUNAVIR [Suspect]
     Active Substance: DARUNAVIR
     Dosage: UNK
     Route: 048
  337. DARUNAVIR [Suspect]
     Active Substance: DARUNAVIR
     Dosage: UNK
     Route: 065
  338. DARUNAVIR [Suspect]
     Active Substance: DARUNAVIR
     Dosage: UNK
     Route: 065
  339. DARUNAVIR [Suspect]
     Active Substance: DARUNAVIR
     Dosage: UNK
     Route: 048
  340. DELAVIRDINE MESYLATE [Suspect]
     Active Substance: DELAVIRDINE MESYLATE
     Indication: HIV infection
     Dosage: UNK
     Route: 048
  341. DELAVIRDINE MESYLATE [Suspect]
     Active Substance: DELAVIRDINE MESYLATE
     Indication: Product used for unknown indication
     Dosage: UNK
     Route: 065
  342. DELAVIRDINE MESYLATE [Suspect]
     Active Substance: DELAVIRDINE MESYLATE
     Dosage: UNK
     Route: 048
  343. DELAVIRDINE MESYLATE [Suspect]
     Active Substance: DELAVIRDINE MESYLATE
     Dosage: UNK
     Route: 048
  344. DELAVIRDINE MESYLATE [Suspect]
     Active Substance: DELAVIRDINE MESYLATE
     Dosage: UNK
     Route: 065
  345. DELAVIRDINE MESYLATE [Suspect]
     Active Substance: DELAVIRDINE MESYLATE
     Dosage: UNK
     Route: 048
  346. DELAVIRDINE MESYLATE [Suspect]
     Active Substance: DELAVIRDINE MESYLATE
     Dosage: UNK
     Route: 048
  347. DELAVIRDINE MESYLATE [Suspect]
     Active Substance: DELAVIRDINE MESYLATE
     Dosage: UNK
     Route: 065
  348. DELAVIRDINE MESYLATE [Suspect]
     Active Substance: DELAVIRDINE MESYLATE
     Dosage: UNK
     Route: 048
  349. DELAVIRDINE MESYLATE [Suspect]
     Active Substance: DELAVIRDINE MESYLATE
     Dosage: UNK
     Route: 048
  350. DELAVIRDINE MESYLATE [Suspect]
     Active Substance: DELAVIRDINE MESYLATE
     Dosage: UNK
     Route: 065
  351. DELAVIRDINE MESYLATE [Suspect]
     Active Substance: DELAVIRDINE MESYLATE
     Dosage: UNK
     Route: 048
  352. DELAVIRDINE MESYLATE [Suspect]
     Active Substance: DELAVIRDINE MESYLATE
     Dosage: UNK
     Route: 048
  353. DELAVIRDINE MESYLATE [Suspect]
     Active Substance: DELAVIRDINE MESYLATE
     Dosage: UNK
     Route: 065
  354. DELAVIRDINE MESYLATE [Suspect]
     Active Substance: DELAVIRDINE MESYLATE
     Dosage: UNK
     Route: 048
  355. DELAVIRDINE MESYLATE [Suspect]
     Active Substance: DELAVIRDINE MESYLATE
     Dosage: UNK
     Route: 048
  356. DELAVIRDINE MESYLATE [Suspect]
     Active Substance: DELAVIRDINE MESYLATE
     Dosage: UNK
     Route: 065
  357. DELAVIRDINE MESYLATE [Suspect]
     Active Substance: DELAVIRDINE MESYLATE
     Dosage: UNK
     Route: 048
  358. DIDANOSINE [Suspect]
     Active Substance: DIDANOSINE
     Indication: HIV infection
     Dosage: DOSAGE FORM: NOT SPECIFIED.
     Route: 065
  359. DIDANOSINE [Suspect]
     Active Substance: DIDANOSINE
     Dosage: DOSAGE FORM: NOT SPECIFIED.
     Route: 048
  360. DIDANOSINE [Suspect]
     Active Substance: DIDANOSINE
     Dosage: UNK
     Route: 065
  361. DIDANOSINE [Suspect]
     Active Substance: DIDANOSINE
     Dosage: DOSAGE FORM: NOT SPECIFIED.
     Route: 065
  362. DIDANOSINE [Suspect]
     Active Substance: DIDANOSINE
     Dosage: DOSAGE FORM: NOT SPECIFIED.
     Route: 048
  363. DIDANOSINE [Suspect]
     Active Substance: DIDANOSINE
     Dosage: UNK
     Route: 065
  364. DIDANOSINE [Suspect]
     Active Substance: DIDANOSINE
     Dosage: DOSAGE FORM: NOT SPECIFIED.
     Route: 065
  365. DIDANOSINE [Suspect]
     Active Substance: DIDANOSINE
     Dosage: DOSAGE FORM: NOT SPECIFIED.
     Route: 048
  366. DIDANOSINE [Suspect]
     Active Substance: DIDANOSINE
     Dosage: UNK
     Route: 065
  367. DIDANOSINE [Suspect]
     Active Substance: DIDANOSINE
     Dosage: DOSAGE FORM: NOT SPECIFIED.
     Route: 065
  368. DIDANOSINE [Suspect]
     Active Substance: DIDANOSINE
     Dosage: DOSAGE FORM: NOT SPECIFIED.
     Route: 048
  369. DIDANOSINE [Suspect]
     Active Substance: DIDANOSINE
     Dosage: UNK
     Route: 065
  370. DIDANOSINE [Suspect]
     Active Substance: DIDANOSINE
     Dosage: DOSAGE FORM: NOT SPECIFIED.
     Route: 065
  371. DIDANOSINE [Suspect]
     Active Substance: DIDANOSINE
     Dosage: DOSAGE FORM: NOT SPECIFIED.
     Route: 048
  372. DIDANOSINE [Suspect]
     Active Substance: DIDANOSINE
     Dosage: UNK
     Route: 065
  373. DIDANOSINE [Suspect]
     Active Substance: DIDANOSINE
     Dosage: DOSAGE FORM: NOT SPECIFIED.
     Route: 065
  374. DIDANOSINE [Suspect]
     Active Substance: DIDANOSINE
     Dosage: DOSAGE FORM: NOT SPECIFIED.
     Route: 048
  375. DIDANOSINE [Suspect]
     Active Substance: DIDANOSINE
     Dosage: UNK
     Route: 065
  376. ETRAVIRINE [Suspect]
     Active Substance: ETRAVIRINE
     Indication: HIV infection
     Dosage: UNK
     Route: 048
  377. ETRAVIRINE [Suspect]
     Active Substance: ETRAVIRINE
     Indication: Antiretroviral therapy
     Dosage: UNK
     Route: 065
  378. ETRAVIRINE [Suspect]
     Active Substance: ETRAVIRINE
     Dosage: UNK
     Route: 048
  379. ETRAVIRINE [Suspect]
     Active Substance: ETRAVIRINE
     Dosage: UNK
     Route: 065
  380. ETRAVIRINE [Suspect]
     Active Substance: ETRAVIRINE
     Dosage: UNK
     Route: 048
  381. ETRAVIRINE [Suspect]
     Active Substance: ETRAVIRINE
     Dosage: UNK
     Route: 065
  382. ETRAVIRINE [Suspect]
     Active Substance: ETRAVIRINE
     Dosage: UNK
     Route: 048
  383. ETRAVIRINE [Suspect]
     Active Substance: ETRAVIRINE
     Dosage: UNK
     Route: 065
  384. ETRAVIRINE [Suspect]
     Active Substance: ETRAVIRINE
     Dosage: UNK
     Route: 048
  385. ETRAVIRINE [Suspect]
     Active Substance: ETRAVIRINE
     Dosage: UNK
     Route: 065
  386. ETRAVIRINE [Suspect]
     Active Substance: ETRAVIRINE
     Dosage: UNK
     Route: 048
  387. ETRAVIRINE [Suspect]
     Active Substance: ETRAVIRINE
     Dosage: UNK
     Route: 065
  388. INDINAVIR SULFATE [Suspect]
     Active Substance: INDINAVIR SULFATE
     Indication: HIV infection
     Dosage: UNK
     Route: 048
  389. INDINAVIR SULFATE [Suspect]
     Active Substance: INDINAVIR SULFATE
     Dosage: UNK
     Route: 048
  390. INDINAVIR SULFATE [Suspect]
     Active Substance: INDINAVIR SULFATE
     Dosage: UNK
     Route: 048
  391. INDINAVIR SULFATE [Suspect]
     Active Substance: INDINAVIR SULFATE
     Dosage: UNK
     Route: 048
  392. INDINAVIR SULFATE [Suspect]
     Active Substance: INDINAVIR SULFATE
     Dosage: UNK
     Route: 048
  393. INDINAVIR SULFATE [Suspect]
     Active Substance: INDINAVIR SULFATE
     Dosage: UNK
     Route: 048
  394. INDINAVIR SULFATE [Suspect]
     Active Substance: INDINAVIR SULFATE
     Indication: HIV infection
     Dosage: UNK
     Route: 065
  395. INDINAVIR SULFATE [Suspect]
     Active Substance: INDINAVIR SULFATE
     Dosage: UNK
     Route: 048
  396. INDINAVIR SULFATE [Suspect]
     Active Substance: INDINAVIR SULFATE
     Dosage: UNK
     Route: 048
  397. INDINAVIR SULFATE [Suspect]
     Active Substance: INDINAVIR SULFATE
     Dosage: UNK
     Route: 065
  398. INDINAVIR SULFATE [Suspect]
     Active Substance: INDINAVIR SULFATE
     Dosage: UNK
     Route: 048
  399. INDINAVIR SULFATE [Suspect]
     Active Substance: INDINAVIR SULFATE
     Dosage: UNK
     Route: 048
  400. INDINAVIR SULFATE [Suspect]
     Active Substance: INDINAVIR SULFATE
     Dosage: UNK
     Route: 065
  401. INDINAVIR SULFATE [Suspect]
     Active Substance: INDINAVIR SULFATE
     Dosage: UNK
     Route: 048
  402. INDINAVIR SULFATE [Suspect]
     Active Substance: INDINAVIR SULFATE
     Dosage: UNK
     Route: 048
  403. INDINAVIR SULFATE [Suspect]
     Active Substance: INDINAVIR SULFATE
     Dosage: UNK
     Route: 065
  404. INDINAVIR SULFATE [Suspect]
     Active Substance: INDINAVIR SULFATE
     Dosage: UNK
     Route: 048
  405. INDINAVIR SULFATE [Suspect]
     Active Substance: INDINAVIR SULFATE
     Dosage: UNK
     Route: 048
  406. INDINAVIR SULFATE [Suspect]
     Active Substance: INDINAVIR SULFATE
     Dosage: UNK
     Route: 065
  407. INDINAVIR SULFATE [Suspect]
     Active Substance: INDINAVIR SULFATE
     Dosage: UNK
     Route: 048
  408. INDINAVIR SULFATE [Suspect]
     Active Substance: INDINAVIR SULFATE
     Dosage: UNK
     Route: 048
  409. INDINAVIR SULFATE [Suspect]
     Active Substance: INDINAVIR SULFATE
     Dosage: UNK
     Route: 065
  410. INDINAVIR SULFATE [Suspect]
     Active Substance: INDINAVIR SULFATE
     Dosage: UNK
     Route: 048
  411. INDINAVIR SULFATE [Suspect]
     Active Substance: INDINAVIR SULFATE
     Dosage: UNK
     Route: 048
  412. NELFINAVIR MESYLATE [Suspect]
     Active Substance: NELFINAVIR MESYLATE
     Indication: HIV infection
     Dosage: 1 EVERY 9 MINUTES
     Route: 065
  413. NELFINAVIR MESYLATE [Suspect]
     Active Substance: NELFINAVIR MESYLATE
     Dosage: UNK
     Route: 048
  414. NELFINAVIR MESYLATE [Suspect]
     Active Substance: NELFINAVIR MESYLATE
     Dosage: UNK
     Route: 048
  415. NELFINAVIR MESYLATE [Suspect]
     Active Substance: NELFINAVIR MESYLATE
     Dosage: 1 EVERY 9 MINUTES
     Route: 065
  416. NELFINAVIR MESYLATE [Suspect]
     Active Substance: NELFINAVIR MESYLATE
     Dosage: UNK
     Route: 048
  417. NELFINAVIR MESYLATE [Suspect]
     Active Substance: NELFINAVIR MESYLATE
     Dosage: UNK
     Route: 048
  418. NELFINAVIR MESYLATE [Suspect]
     Active Substance: NELFINAVIR MESYLATE
     Dosage: 1 EVERY 9 MINUTES
     Route: 065
  419. NELFINAVIR MESYLATE [Suspect]
     Active Substance: NELFINAVIR MESYLATE
     Dosage: UNK
     Route: 048
  420. NELFINAVIR MESYLATE [Suspect]
     Active Substance: NELFINAVIR MESYLATE
     Dosage: UNK
     Route: 048
  421. NELFINAVIR MESYLATE [Suspect]
     Active Substance: NELFINAVIR MESYLATE
     Dosage: 1 EVERY 9 MINUTES
     Route: 065
  422. NELFINAVIR MESYLATE [Suspect]
     Active Substance: NELFINAVIR MESYLATE
     Dosage: UNK
     Route: 048
  423. NELFINAVIR MESYLATE [Suspect]
     Active Substance: NELFINAVIR MESYLATE
     Dosage: UNK
     Route: 048
  424. NELFINAVIR MESYLATE [Suspect]
     Active Substance: NELFINAVIR MESYLATE
     Dosage: 1 EVERY 9 MINUTES
     Route: 065
  425. NELFINAVIR MESYLATE [Suspect]
     Active Substance: NELFINAVIR MESYLATE
     Dosage: UNK
     Route: 048
  426. NELFINAVIR MESYLATE [Suspect]
     Active Substance: NELFINAVIR MESYLATE
     Dosage: UNK
     Route: 048
  427. NELFINAVIR MESYLATE [Suspect]
     Active Substance: NELFINAVIR MESYLATE
     Dosage: 1 EVERY 9 MINUTES
     Route: 065
  428. NELFINAVIR MESYLATE [Suspect]
     Active Substance: NELFINAVIR MESYLATE
     Dosage: UNK
     Route: 048
  429. NELFINAVIR MESYLATE [Suspect]
     Active Substance: NELFINAVIR MESYLATE
     Dosage: UNK
     Route: 048
  430. RITONAVIR [Suspect]
     Active Substance: RITONAVIR
     Indication: HIV infection
     Dosage: DOSAGE FORM NOT SPECIFIED
     Route: 065
  431. RITONAVIR [Suspect]
     Active Substance: RITONAVIR
     Dosage: UNK
     Route: 065
  432. RITONAVIR [Suspect]
     Active Substance: RITONAVIR
     Dosage: DOSAGE FORM NOT SPECIFIED
     Route: 065
  433. RITONAVIR [Suspect]
     Active Substance: RITONAVIR
     Dosage: UNK
     Route: 065
  434. RITONAVIR [Suspect]
     Active Substance: RITONAVIR
     Dosage: DOSAGE FORM NOT SPECIFIED
     Route: 065
  435. RITONAVIR [Suspect]
     Active Substance: RITONAVIR
     Dosage: UNK
     Route: 065
  436. RITONAVIR [Suspect]
     Active Substance: RITONAVIR
     Dosage: DOSAGE FORM NOT SPECIFIED
     Route: 065
  437. RITONAVIR [Suspect]
     Active Substance: RITONAVIR
     Dosage: UNK
     Route: 065
  438. RITONAVIR [Suspect]
     Active Substance: RITONAVIR
     Dosage: DOSAGE FORM NOT SPECIFIED
     Route: 065
  439. RITONAVIR [Suspect]
     Active Substance: RITONAVIR
     Dosage: UNK
     Route: 065
  440. RITONAVIR [Suspect]
     Active Substance: RITONAVIR
     Dosage: DOSAGE FORM NOT SPECIFIED
     Route: 065
  441. RITONAVIR [Suspect]
     Active Substance: RITONAVIR
     Dosage: UNK
     Route: 065
  442. STAVUDINE [Suspect]
     Active Substance: STAVUDINE
     Indication: HIV infection
     Dosage: UNK
     Route: 048
  443. STAVUDINE [Suspect]
     Active Substance: STAVUDINE
     Dosage: UNK
     Route: 048
  444. STAVUDINE [Suspect]
     Active Substance: STAVUDINE
     Dosage: UNK
     Route: 048
  445. STAVUDINE [Suspect]
     Active Substance: STAVUDINE
     Dosage: UNK
     Route: 048
  446. STAVUDINE [Suspect]
     Active Substance: STAVUDINE
     Dosage: UNK
     Route: 048
  447. STAVUDINE [Suspect]
     Active Substance: STAVUDINE
     Dosage: UNK
     Route: 048
  448. VIRAMUNE [Suspect]
     Active Substance: NEVIRAPINE
     Indication: HIV infection
     Dosage: UNK
     Route: 048
  449. VIRAMUNE [Suspect]
     Active Substance: NEVIRAPINE
     Dosage: UNK
     Route: 065
  450. VIRAMUNE [Suspect]
     Active Substance: NEVIRAPINE
     Dosage: UNK
     Route: 048
  451. VIRAMUNE [Suspect]
     Active Substance: NEVIRAPINE
     Dosage: UNK
     Route: 065
  452. VIRAMUNE [Suspect]
     Active Substance: NEVIRAPINE
     Dosage: UNK
     Route: 048
  453. VIRAMUNE [Suspect]
     Active Substance: NEVIRAPINE
     Dosage: UNK
     Route: 065
  454. VIRAMUNE [Suspect]
     Active Substance: NEVIRAPINE
     Dosage: UNK
     Route: 048
  455. VIRAMUNE [Suspect]
     Active Substance: NEVIRAPINE
     Dosage: UNK
     Route: 065
  456. VIRAMUNE [Suspect]
     Active Substance: NEVIRAPINE
     Dosage: UNK
     Route: 048
  457. VIRAMUNE [Suspect]
     Active Substance: NEVIRAPINE
     Dosage: UNK
     Route: 065
  458. VIRAMUNE [Suspect]
     Active Substance: NEVIRAPINE
     Dosage: UNK
     Route: 048
  459. VIRAMUNE [Suspect]
     Active Substance: NEVIRAPINE
     Dosage: UNK
     Route: 065
  460. VIRACEPT [Suspect]
     Active Substance: NELFINAVIR MESYLATE
     Indication: HIV infection
     Dosage: UNK
     Route: 065
  461. VIRACEPT [Suspect]
     Active Substance: NELFINAVIR MESYLATE
     Dosage: UNK
     Route: 065
  462. VIRACEPT [Suspect]
     Active Substance: NELFINAVIR MESYLATE
     Dosage: UNK
     Route: 065
  463. VIRACEPT [Suspect]
     Active Substance: NELFINAVIR MESYLATE
     Dosage: UNK
     Route: 065
  464. VIRACEPT [Suspect]
     Active Substance: NELFINAVIR MESYLATE
     Dosage: UNK
     Route: 065
  465. VIRACEPT [Suspect]
     Active Substance: NELFINAVIR MESYLATE
     Dosage: UNK
     Route: 065
  466. LOPINAVIR [Suspect]
     Active Substance: LOPINAVIR
     Indication: HIV infection
     Dosage: DOSAGE FORM: NOT SPECIFIED
     Route: 065
  467. LOPINAVIR [Suspect]
     Active Substance: LOPINAVIR
     Dosage: DOSAGE FORM: NOT SPECIFIED
     Route: 065
  468. LOPINAVIR [Suspect]
     Active Substance: LOPINAVIR
     Dosage: DOSAGE FORM: NOT SPECIFIED
     Route: 065
  469. LOPINAVIR [Suspect]
     Active Substance: LOPINAVIR
     Dosage: DOSAGE FORM: NOT SPECIFIED
     Route: 065
  470. LOPINAVIR [Suspect]
     Active Substance: LOPINAVIR
     Dosage: DOSAGE FORM: NOT SPECIFIED
     Route: 065
  471. LOPINAVIR [Suspect]
     Active Substance: LOPINAVIR
     Dosage: DOSAGE FORM: NOT SPECIFIED
     Route: 065
  472. EFAVIRENZ [Suspect]
     Active Substance: EFAVIRENZ
     Indication: HIV infection
     Dosage: DOSAGE FORM: NOT SPECIFIED.
     Route: 048
  473. EFAVIRENZ [Suspect]
     Active Substance: EFAVIRENZ
     Dosage: UNK
     Route: 065
  474. EFAVIRENZ [Suspect]
     Active Substance: EFAVIRENZ
     Dosage: DOSAGE FORM: NOT SPECIFIED.
     Route: 048
  475. EFAVIRENZ [Suspect]
     Active Substance: EFAVIRENZ
     Dosage: UNK
     Route: 065
  476. EFAVIRENZ [Suspect]
     Active Substance: EFAVIRENZ
     Dosage: DOSAGE FORM: NOT SPECIFIED.
     Route: 048
  477. EFAVIRENZ [Suspect]
     Active Substance: EFAVIRENZ
     Dosage: UNK
     Route: 065
  478. EFAVIRENZ [Suspect]
     Active Substance: EFAVIRENZ
     Dosage: DOSAGE FORM: NOT SPECIFIED.
     Route: 048
  479. EFAVIRENZ [Suspect]
     Active Substance: EFAVIRENZ
     Dosage: UNK
     Route: 065
  480. EFAVIRENZ [Suspect]
     Active Substance: EFAVIRENZ
     Dosage: DOSAGE FORM: NOT SPECIFIED.
     Route: 048
  481. EFAVIRENZ [Suspect]
     Active Substance: EFAVIRENZ
     Dosage: UNK
     Route: 065
  482. EFAVIRENZ [Suspect]
     Active Substance: EFAVIRENZ
     Dosage: DOSAGE FORM: NOT SPECIFIED.
     Route: 048
  483. EFAVIRENZ [Suspect]
     Active Substance: EFAVIRENZ
     Dosage: UNK
     Route: 065
  484. FUZEON [Suspect]
     Active Substance: ENFUVIRTIDE
     Route: 058
  485. FUZEON [Suspect]
     Active Substance: ENFUVIRTIDE
     Dosage: FREQUENCY: TOTAL
     Route: 058
  486. FUZEON [Suspect]
     Active Substance: ENFUVIRTIDE
     Route: 058
  487. FUZEON [Suspect]
     Active Substance: ENFUVIRTIDE
     Dosage: FREQUENCY: TOTAL
     Route: 058
  488. FUZEON [Suspect]
     Active Substance: ENFUVIRTIDE
     Route: 058
  489. FUZEON [Suspect]
     Active Substance: ENFUVIRTIDE
     Dosage: FREQUENCY: TOTAL
     Route: 058
  490. FUZEON [Suspect]
     Active Substance: ENFUVIRTIDE
     Route: 058
  491. FUZEON [Suspect]
     Active Substance: ENFUVIRTIDE
     Dosage: FREQUENCY: TOTAL
     Route: 058
  492. FUZEON [Suspect]
     Active Substance: ENFUVIRTIDE
     Route: 058
  493. FUZEON [Suspect]
     Active Substance: ENFUVIRTIDE
     Dosage: FREQUENCY: TOTAL
     Route: 058
  494. FUZEON [Suspect]
     Active Substance: ENFUVIRTIDE
     Route: 058
  495. FUZEON [Suspect]
     Active Substance: ENFUVIRTIDE
     Dosage: FREQUENCY: TOTAL
     Route: 058
  496. ZIAGEN [Suspect]
     Active Substance: ABACAVIR SULFATE
     Route: 065
  497. ZIAGEN [Suspect]
     Active Substance: ABACAVIR SULFATE
     Route: 065
  498. ZIAGEN [Suspect]
     Active Substance: ABACAVIR SULFATE
     Route: 065
  499. ZIAGEN [Suspect]
     Active Substance: ABACAVIR SULFATE
     Route: 065
  500. ZIAGEN [Suspect]
     Active Substance: ABACAVIR SULFATE
     Route: 065
  501. ZIAGEN [Suspect]
     Active Substance: ABACAVIR SULFATE
     Route: 065
  502. ATAZANAVIR SULFATE [Suspect]
     Active Substance: ATAZANAVIR SULFATE
     Indication: HIV infection
     Route: 048
  503. ATAZANAVIR SULFATE [Suspect]
     Active Substance: ATAZANAVIR SULFATE
     Indication: Antiretroviral therapy
     Dosage: UNK
     Route: 065
  504. ATAZANAVIR SULFATE [Suspect]
     Active Substance: ATAZANAVIR SULFATE
     Route: 048
  505. ATAZANAVIR SULFATE [Suspect]
     Active Substance: ATAZANAVIR SULFATE
     Dosage: UNK
     Route: 065
  506. ATAZANAVIR SULFATE [Suspect]
     Active Substance: ATAZANAVIR SULFATE
     Route: 048
  507. ATAZANAVIR SULFATE [Suspect]
     Active Substance: ATAZANAVIR SULFATE
     Dosage: UNK
     Route: 065
  508. ATAZANAVIR SULFATE [Suspect]
     Active Substance: ATAZANAVIR SULFATE
     Route: 048
  509. ATAZANAVIR SULFATE [Suspect]
     Active Substance: ATAZANAVIR SULFATE
     Dosage: UNK
     Route: 065
  510. ATAZANAVIR SULFATE [Suspect]
     Active Substance: ATAZANAVIR SULFATE
     Route: 048
  511. ATAZANAVIR SULFATE [Suspect]
     Active Substance: ATAZANAVIR SULFATE
     Dosage: UNK
     Route: 065
  512. ATAZANAVIR SULFATE [Suspect]
     Active Substance: ATAZANAVIR SULFATE
     Route: 048
  513. ATAZANAVIR SULFATE [Suspect]
     Active Substance: ATAZANAVIR SULFATE
     Dosage: UNK
     Route: 065

REACTIONS (8)
  - Progressive external ophthalmoplegia [Recovering/Resolving]
  - Mitochondrial toxicity [Unknown]
  - Diplopia [Recovering/Resolving]
  - Eyelid ptosis [Recovering/Resolving]
  - Lipodystrophy acquired [Recovering/Resolving]
  - Blood lactic acid increased [Not Recovered/Not Resolved]
  - Dysphagia [Not Recovered/Not Resolved]
  - Ophthalmoplegia [Unknown]
